FAERS Safety Report 4690151-9 (Version None)
Quarter: 2005Q2

REPORT INFORMATION
  Report Type: 
  Country: None (occurrence: None)
  Receive Date: 20050613
  Receipt Date: 20050530
  Transmission Date: 20051028
  Serious: Yes (Disabling)
  Sender: FDA-Public Use
  Company Number: 2005EU001114

PATIENT
  Age: 57 Year
  Sex: Male

DRUGS (4)
  1. PROGRAF [Suspect]
     Indication: HEART TRANSPLANT
     Dosage: 3.50 MG, BID
     Dates: start: 20000101, end: 20030101
  2. MYCOPHENOLATE MOFETIL (MYCOPHENOLATE MOFETIL) [Concomitant]
  3. PREDNISOLONE [Concomitant]
  4. SIROLIMUS (SIROLIMUS) [Concomitant]

REACTIONS (3)
  - DIARRHOEA [None]
  - HAEMODIALYSIS [None]
  - POLYOMAVIRUS INTERSTITIAL NEPHRITIS [None]
